FAERS Safety Report 9328486 (Version 1)
Quarter: 2013Q2

REPORT INFORMATION
  Report Type: Spontaneous
  Country: US (occurrence: US)
  Receive Date: 20130604
  Receipt Date: 20130604
  Transmission Date: 20140414
  Serious: No
  Sender: FDA-Public Use
  Company Number: US-SANOFI-AVENTIS-2012SA060464

PATIENT
  Age: 74 Year
  Sex: Female
  Weight: 55.79 kg

DRUGS (5)
  1. LANTUS [Suspect]
     Indication: TYPE 1 DIABETES MELLITUS
     Dosage: DOSE:3 UNIT(S)
     Route: 058
     Dates: start: 20031117
  2. HUMALOG [Suspect]
     Indication: TYPE 1 DIABETES MELLITUS
     Dosage: 2-3 UNITS IN THE MORNING, 2-3 UNITS AT LUNCH TIME, 5-7 UNITS AT DINNER TIME.
     Route: 065
  3. LEVOTHYROXINE [Concomitant]
     Indication: THYROID DISORDER
     Dates: start: 1962
  4. SIMVASTATIN [Concomitant]
     Indication: BLOOD CHOLESTEROL
     Dates: start: 1965
  5. LISINOPRIL [Concomitant]
     Indication: RENAL DISORDER
     Dosage: HALF TABLET PER DAY
     Dates: start: 1965

REACTIONS (3)
  - Unevaluable event [Unknown]
  - Blood glucose increased [Recovered/Resolved]
  - Drug ineffective [Unknown]
